FAERS Safety Report 16043119 (Version 2)
Quarter: 2019Q1

REPORT INFORMATION
  Report Type: Spontaneous
  Country: US (occurrence: US)
  Receive Date: 20190306
  Receipt Date: 20190327
  Transmission Date: 20190418
  Serious: No
  Sender: FDA-Public Use
  Company Number: US-GLAXOSMITHKLINE-US2019035223

PATIENT
  Sex: Female

DRUGS (1)
  1. VERAMYST [Suspect]
     Active Substance: FLUTICASONE FUROATE
     Indication: SEASONAL ALLERGY
     Dosage: 27.5MCG
     Route: 045

REACTIONS (3)
  - Product storage error [Unknown]
  - Product complaint [Unknown]
  - Product dose omission [Unknown]
